FAERS Safety Report 6027988-X (Version None)
Quarter: 2008Q4

REPORT INFORMATION
  Report Type: 
  Country: None (occurrence: None)
  Receive Date: 20081230
  Receipt Date: 20081219
  Transmission Date: 20090506
  Serious: Yes (Hospitalization)
  Sender: FDA-Public Use
  Company Number: 55477

PATIENT
  Age: 65 Year
  Sex: Female

DRUGS (1)
  1. FLUCONAZOLE [Suspect]
     Indication: CANDIDIASIS
     Dosage: 800MG/DAYX3 WEEKS

REACTIONS (3)
  - ABASIA [None]
  - QUADRIPARESIS [None]
  - RHABDOMYOLYSIS [None]
